FAERS Safety Report 23126938 (Version 3)
Quarter: 2024Q3

REPORT INFORMATION
  Report Type: Spontaneous
  Country: HR (occurrence: HR)
  Receive Date: 20231030
  Receipt Date: 20240829
  Transmission Date: 20241016
  Serious: Yes (Other)
  Sender: SANDOZ
  Company Number: HR-JNJFOC-20231032911

PATIENT
  Age: 63 Year
  Sex: Male

DRUGS (38)
  1. CYCLOPHOSPHAMIDE [Suspect]
     Active Substance: CYCLOPHOSPHAMIDE
     Dosage: UNK (1 TIME AS A PART OF KD+ PACE REGIMEN)
     Route: 065
     Dates: start: 202303
  2. CYCLOPHOSPHAMIDE [Suspect]
     Active Substance: CYCLOPHOSPHAMIDE
     Indication: Light chain disease
     Dosage: UNK (5 TIMES AS A PART OF VCD REGIMEN)
     Route: 065
     Dates: start: 202203, end: 202205
  3. CYCLOPHOSPHAMIDE [Suspect]
     Active Substance: CYCLOPHOSPHAMIDE
     Indication: Plasma cell myeloma
     Dosage: UNK (5 TIMES AS A PART OF VCD REGIMEN)
     Route: 065
     Dates: start: 202203, end: 202205
  4. CYCLOPHOSPHAMIDE [Suspect]
     Active Substance: CYCLOPHOSPHAMIDE
     Dosage: UNK, (DOSAGE TEXT: 1X KD)
     Route: 065
     Dates: start: 202303, end: 202303
  5. CARFILZOMIB [Suspect]
     Active Substance: CARFILZOMIB
     Indication: Plasma cell myeloma
     Dosage: UNK (1 TIME AS A PART OF KD+PACE REGIMEN)
     Route: 065
     Dates: start: 202303
  6. CARFILZOMIB [Suspect]
     Active Substance: CARFILZOMIB
     Indication: Light chain disease
     Dosage: UNK (3 TIMES, AS A PART OF KD+MP REGIMEN)
     Route: 065
     Dates: start: 202304, end: 202306
  7. CARFILZOMIB [Suspect]
     Active Substance: CARFILZOMIB
     Dosage: UNK, (1X KD)
     Route: 065
     Dates: start: 202303, end: 202303
  8. CARFILZOMIB [Suspect]
     Active Substance: CARFILZOMIB
     Dosage: UNK, Q2MO, (TEXT: 3X KD)
     Route: 065
     Dates: start: 202304, end: 202306
  9. CISPLATIN [Suspect]
     Active Substance: CISPLATIN
     Indication: Plasma cell myeloma
     Dosage: UNK (1 TIME AS A PART OF KD+PACE REGIMEN)
     Route: 065
     Dates: start: 202303
  10. CISPLATIN [Suspect]
     Active Substance: CISPLATIN
     Indication: Light chain disease
     Dosage: UNK, (1X KD)
     Route: 065
     Dates: start: 202303, end: 202303
  11. CISPLATIN [Suspect]
     Active Substance: CISPLATIN
     Indication: Light chain disease
  12. CISPLATIN [Suspect]
     Active Substance: CISPLATIN
     Indication: Plasma cell myeloma
  13. DEXAMETHASONE [Suspect]
     Active Substance: DEXAMETHASONE
     Dosage: UNK (1 TIME AS A PART OF KD+PACE REGIMEN)
     Route: 065
     Dates: start: 202303
  14. DEXAMETHASONE [Suspect]
     Active Substance: DEXAMETHASONE
     Dosage: UNK (3 TIMES AS A PART OF VAD+ IXAZOMIB REGIMEN)
     Route: 065
     Dates: start: 202306, end: 202308
  15. DEXAMETHASONE [Suspect]
     Active Substance: DEXAMETHASONE
     Dosage: UNK (3 TIMES, AS A PART OF KD+MP REGIMEN)
     Route: 065
     Dates: start: 202304, end: 202306
  16. DEXAMETHASONE [Suspect]
     Active Substance: DEXAMETHASONE
     Indication: Light chain disease
     Dosage: UNK (5 TIMES AS A PART OF DRD REGIMEN)
     Route: 065
     Dates: start: 202208, end: 202302
  17. DEXAMETHASONE [Suspect]
     Active Substance: DEXAMETHASONE
     Indication: Plasma cell myeloma
     Dosage: UNK (5 TIMES AS A PART OF VCD REGIMEN)
     Route: 065
     Dates: start: 202203, end: 202205
  18. DEXAMETHASONE [Suspect]
     Active Substance: DEXAMETHASONE
     Dosage: UNK, (1X KD )
     Route: 065
     Dates: start: 202303, end: 202303
  19. DOXORUBICIN [Suspect]
     Active Substance: DOXORUBICIN
     Indication: Light chain disease
     Dosage: UNK (1 TIME AS A PART OF KD+ PACE REGIMEN)
     Route: 065
     Dates: start: 202303, end: 202303
  20. DOXORUBICIN [Suspect]
     Active Substance: DOXORUBICIN
     Indication: Plasma cell myeloma
     Dosage: UNK (3 TIMES AS A PART OF VAD+ IXAZOMIB REGIMEN)
     Route: 065
     Dates: start: 202306, end: 202308
  21. DARATUMUMAB [Suspect]
     Active Substance: DARATUMUMAB
     Indication: Light chain disease
     Dosage: UNK, (5X DRD), (FREQUENCY: 6 MONTHS)
     Route: 065
     Dates: start: 202208, end: 202302
  22. DARATUMUMAB [Suspect]
     Active Substance: DARATUMUMAB
     Indication: Plasma cell myeloma
  23. DARZALEX [Suspect]
     Active Substance: DARATUMUMAB
     Indication: Plasma cell myeloma
     Dosage: UNK (5 TIMES AS A PART OF DRD REGIMEN)
     Route: 065
     Dates: start: 202208, end: 202302
  24. DARZALEX [Suspect]
     Active Substance: DARATUMUMAB
     Indication: Light chain disease
  25. ETOPOSIDE [Suspect]
     Active Substance: ETOPOSIDE
     Indication: Plasma cell myeloma
     Dosage: UNK (1 TIME AS A PART OF KD+PACE REGIMEN)
     Route: 065
     Dates: start: 202303, end: 202303
  26. ETOPOSIDE [Suspect]
     Active Substance: ETOPOSIDE
     Indication: Light chain disease
  27. IXAZOMIB [Suspect]
     Active Substance: IXAZOMIB
     Indication: Plasma cell myeloma
     Dosage: UNK (3 TIMES AS A PART OF VAD+ IXAZOMIB REGIMEN)
     Route: 065
     Dates: start: 202306, end: 202308
  28. IXAZOMIB [Suspect]
     Active Substance: IXAZOMIB
     Indication: Light chain disease
  29. LENALIDOMIDE [Suspect]
     Active Substance: LENALIDOMIDE
     Indication: Plasma cell myeloma
     Dosage: UNK (5 TIMES AS A PART OF DRD REGIMEN)
     Route: 065
     Dates: start: 202208, end: 202302
  30. LENALIDOMIDE [Suspect]
     Active Substance: LENALIDOMIDE
     Indication: Light chain disease
  31. MELPHALAN [Suspect]
     Active Substance: MELPHALAN
     Indication: Light chain disease
     Dosage: UNK (3 TIMES, AS A PART OF KD+MP REGIMEN)
     Route: 065
     Dates: start: 202304, end: 202306
  32. MELPHALAN [Suspect]
     Active Substance: MELPHALAN
     Indication: Plasma cell myeloma
  33. PREDNISONE [Suspect]
     Active Substance: PREDNISONE
     Indication: Plasma cell myeloma
     Dosage: UNK (3 TIMES, AS A PART OF KD+MP REGIMEN)
     Route: 065
     Dates: start: 202304, end: 202306
  34. PREDNISONE [Suspect]
     Active Substance: PREDNISONE
     Indication: Light chain disease
  35. VELCADE [Suspect]
     Active Substance: BORTEZOMIB
     Indication: Plasma cell myeloma
     Dosage: UNK (5 TIMES AS A PART OF VCD REGIMEN)
     Route: 065
     Dates: start: 202203, end: 202205
  36. VELCADE [Suspect]
     Active Substance: BORTEZOMIB
     Indication: Light chain disease
  37. VINCRISTINE [Suspect]
     Active Substance: VINCRISTINE
     Indication: Plasma cell myeloma
     Dosage: UNK (3 TIMES AS A PART OF VAD+ IXAZOMIB REGIMEN)
     Route: 065
     Dates: start: 202306, end: 202308
  38. VINCRISTINE [Suspect]
     Active Substance: VINCRISTINE
     Indication: Light chain disease

REACTIONS (5)
  - Febrile neutropenia [Unknown]
  - Light chain disease [Unknown]
  - Plasma cell myeloma [Unknown]
  - Therapy partial responder [Unknown]
  - Neutropenia [Unknown]

NARRATIVE: CASE EVENT DATE: 20230101
